FAERS Safety Report 18812649 (Version 1)
Quarter: 2021Q1

REPORT INFORMATION
  Report Type: Spontaneous
  Country: US (occurrence: US)
  Receive Date: 20210130
  Receipt Date: 20210130
  Transmission Date: 20210419
  Serious: No
  Sender: FDA-Public Use
  Company Number: US-009507513-2101USA010140

PATIENT
  Age: 19 Year
  Sex: Female

DRUGS (1)
  1. REMERON [Suspect]
     Active Substance: MIRTAZAPINE
     Indication: ABNORMAL BEHAVIOUR
     Dosage: 15 MILLIGRAM
     Route: 048

REACTIONS (2)
  - Autoscopy [Recovered/Resolved]
  - Product use in unapproved indication [Unknown]
